FAERS Safety Report 9771209 (Version 1)
Quarter: 2013Q4

REPORT INFORMATION
  Report Type: Spontaneous
  Country: US (occurrence: US)
  Receive Date: 20131218
  Receipt Date: 20131218
  Transmission Date: 20140711
  Serious: Yes (Other)
  Sender: FDA-Public Use
  Company Number: US-PFIZER INC-2013362251

PATIENT
  Age: 53 Year
  Sex: Female
  Weight: 81.63 kg

DRUGS (7)
  1. EFFEXOR XR [Suspect]
     Indication: DEPRESSION
     Dosage: UNK
  2. EFFEXOR XR [Suspect]
     Indication: ANXIETY
  3. VENLAFAXINE HCL [Suspect]
     Indication: DEPRESSION
     Dosage: 150 MG, 2X/DAY
     Route: 048
     Dates: start: 201012, end: 2011
  4. VENLAFAXINE HCL [Suspect]
     Indication: ANXIETY
  5. VENLAFAXINE [Suspect]
     Dosage: UNK
  6. VALSARTAN [Concomitant]
     Indication: HYPERTENSION
     Dosage: 160/12.5MG 3X/DAY
  7. NORVASC [Concomitant]
     Indication: HYPERTENSION
     Dosage: 10 MG, DAILY

REACTIONS (1)
  - Suicidal ideation [Recovered/Resolved]
